FAERS Safety Report 7280443-1 (Version None)
Quarter: 2011Q1

REPORT INFORMATION
  Report Type: 
  Country: None (occurrence: None)
  Receive Date: 20110208
  Receipt Date: 20110128
  Transmission Date: 20110831
  Serious: Yes (Hospitalization)
  Sender: FDA-Public Use
  Company Number: US-ROCHE-751760

PATIENT
  Sex: Female
  Weight: 79.8 kg

DRUGS (9)
  1. SENNA [Concomitant]
  2. BEVACIZUMAB [Suspect]
     Indication: NON-SMALL CELL LUNG CANCER
     Dosage: FREQUENCY: D 14 AND D1, Q21D.
     Route: 065
     Dates: start: 20101220, end: 20101220
  3. COMPAZINE [Concomitant]
  4. LEVOFLOXACIN [Concomitant]
  5. ZOFRAN [Concomitant]
  6. ALBUTEROL [Concomitant]
  7. COLACE [Concomitant]
  8. ROBITUSSIN [Concomitant]
  9. TESSALON [Concomitant]

REACTIONS (1)
  - PLEURAL EFFUSION [None]
